FAERS Safety Report 10034190 (Version 1)
Quarter: 2014Q1

REPORT INFORMATION
  Report Type: Spontaneous
  Country: US (occurrence: None)
  Receive Date: 20140324
  Receipt Date: 20140324
  Transmission Date: 20141002
  Serious: Yes (Hospitalization)
  Sender: FDA-Public Use
  Company Number: None

PATIENT
  Age: 29 Year
  Sex: Female
  Weight: 79.38 kg

DRUGS (1)
  1. TRAMADOL HCL 50MG [Suspect]
     Indication: BACK PAIN
     Dosage: 50 MG 1 PILL?ONCE EVERY 8 HOURS?TAKEN BY MOUTH
     Route: 048

REACTIONS (3)
  - Nausea [None]
  - Convulsion [None]
  - Loss of consciousness [None]
